FAERS Safety Report 23225400 (Version 1)
Quarter: 2023Q4

REPORT INFORMATION
  Report Type: Spontaneous
  Country: US (occurrence: US)
  Receive Date: 20231124
  Receipt Date: 20231124
  Transmission Date: 20240110
  Serious: Yes (Other)
  Sender: FDA-Public Use
  Company Number: US-APOTEX-2023AP016760

PATIENT
  Age: 61 Year
  Sex: Female

DRUGS (1)
  1. LITHIUM [Suspect]
     Active Substance: LITHIUM
     Indication: Hyperparathyroidism
     Dosage: UNK
     Route: 065

REACTIONS (9)
  - Acute kidney injury [Unknown]
  - Nephrogenic diabetes insipidus [Unknown]
  - Hypothyroidism [Unknown]
  - Mental status changes [Unknown]
  - Hypernatraemia [Unknown]
  - Hyperparathyroidism [Unknown]
  - Toxicity to various agents [Unknown]
  - Hypercalcaemia [Unknown]
  - Polyuria [Unknown]
